FAERS Safety Report 9883231 (Version 1)
Quarter: 2014Q1

REPORT INFORMATION
  Report Type: Report from Study
  Country: MX (occurrence: MX)
  Receive Date: 20140209
  Receipt Date: 20140209
  Transmission Date: 20141002
  Serious: Yes (Other)
  Sender: FDA-Public Use
  Company Number: PHHY2014MX015501

PATIENT
  Age: 73 Year
  Sex: Female

DRUGS (7)
  1. CO-DIOVAN [Suspect]
     Indication: HYPERTENSION
     Dosage: 1 DF(160/12.5MG), DAILY
     Route: 048
     Dates: start: 201111, end: 201111
  2. CO-DIOVAN [Suspect]
     Dosage: 1 DF(160/12.5MG), DAILY
     Route: 048
     Dates: start: 201112
  3. AROPAX [Concomitant]
     Indication: DEPRESSION
     Dosage: 0.5 UKN, DAILY
     Dates: start: 201105, end: 20131230
  4. AKSPRI [Concomitant]
     Indication: DIABETES MELLITUS
     Dosage: 1000 UKN, UNK
     Dates: start: 201212
  5. AKSPRI [Concomitant]
     Dosage: 500 UKN, UNK
  6. NEURONTIN [Concomitant]
     Indication: NEUROPATHY PERIPHERAL
     Dosage: 1 UKN, DAILY
  7. DIOVAN [Concomitant]
     Indication: HYPERTENSION
     Dosage: 1 DF, DAILY
     Route: 048
     Dates: start: 201112, end: 201112

REACTIONS (2)
  - Spinal column injury [Not Recovered/Not Resolved]
  - Pain in extremity [Not Recovered/Not Resolved]
